FAERS Safety Report 6675119-5 (Version None)
Quarter: 2010Q2

REPORT INFORMATION
  Report Type: 
  Country: None (occurrence: None)
  Receive Date: 20100409
  Receipt Date: 20100330
  Transmission Date: 20101027
  Serious: Yes (Death, Other)
  Sender: FDA-Public Use
  Company Number: US-ABBOTT-10P-163-0635405-00

PATIENT
  Age: 47 Year
  Sex: Male

DRUGS (5)
  1. VICODIN [Suspect]
     Indication: DRUG USE FOR UNKNOWN INDICATION
  2. LORTAB [Suspect]
     Indication: PAIN
  3. OXYCONTIN [Suspect]
     Indication: DRUG USE FOR UNKNOWN INDICATION
  4. METHADONE HCL [Suspect]
     Indication: DRUG USE FOR UNKNOWN INDICATION
  5. PAXIL [Concomitant]
     Indication: DRUG USE FOR UNKNOWN INDICATION

REACTIONS (2)
  - CARDIAC ARREST [None]
  - DRUG TOXICITY [None]
